FAERS Safety Report 4662102-4 (Version None)
Quarter: 2005Q2

REPORT INFORMATION
  Report Type: 
  Country: None (occurrence: None)
  Receive Date: 20050512
  Receipt Date: 20050429
  Transmission Date: 20051028
  Serious: Yes (Other)
  Sender: FDA-Public Use
  Company Number: 2005017174

PATIENT
  Age: 30 Year
  Sex: Female
  Weight: 80.7403 kg

DRUGS (5)
  1. SOLU-MEDROL [Suspect]
     Indication: MULTIPLE SCLEROSIS
     Dosage: 1 GRAM (1 GRAM, 1 IN 1 D), INTRAVENOUS
     Route: 042
     Dates: start: 20041122, end: 20041122
  2. INTERFERON BETA (INTERFERON BETA) [Concomitant]
  3. FEXOFENADINE HYDROCHLORIDE [Concomitant]
  4. FERROUS SULFATE TAB [Concomitant]
  5. OMEPRAZOLE [Concomitant]

REACTIONS (4)
  - COUGH [None]
  - LARYNGOSPASM [None]
  - PRURITUS [None]
  - VASOSPASM [None]
